FAERS Safety Report 6994329-0 (Version None)
Quarter: 2010Q3

REPORT INFORMATION
  Report Type: 
  Country: None (occurrence: None)
  Receive Date: 20100917
  Receipt Date: 20100904
  Transmission Date: 20110219
  Serious: No
  Sender: FDA-Public Use
  Company Number: US-PFIZER INC-2010112392

PATIENT
  Sex: Male
  Weight: 88.435 kg

DRUGS (2)
  1. CHANTIX [Suspect]
     Indication: SMOKING CESSATION THERAPY
     Dosage: 0.5 MG, 1X/DAY
     Route: 048
     Dates: start: 20100831, end: 20100903
  2. ACETYLSALICYLIC ACID [Concomitant]
     Dosage: UNK, ONCE DAILY

REACTIONS (2)
  - ABNORMAL DREAMS [None]
  - DIZZINESS [None]
